FAERS Safety Report 7117869-2 (Version None)
Quarter: 2010Q4

REPORT INFORMATION
  Report Type: 
  Country: None (occurrence: None)
  Receive Date: 20101118
  Receipt Date: 20101118
  Transmission Date: 20110411
  Serious: Yes (Life-Threatening)
  Sender: FDA-Public Use
  Company Number: None

PATIENT
  Age: 23 Day
  Sex: Male
  Weight: 3.4 kg

DRUGS (7)
  1. FLUCONAZOLE [Suspect]
     Indication: PROPHYLAXIS
     Dosage: 25 MG/KG IV WEEKLY
     Route: 042
     Dates: start: 20101109
  2. VANCOMYCIN [Concomitant]
  3. GENTAMICIN [Concomitant]
  4. PIPERACILLIN AND TAZOBACTAM [Concomitant]
  5. HEPARIN [Concomitant]
  6. MIDAZOLAM [Concomitant]
  7. FENTANYL [Concomitant]

REACTIONS (6)
  - ACIDOSIS [None]
  - CARDIAC ARREST [None]
  - CARDIAC DISORDER [None]
  - HEPATIC FUNCTION ABNORMAL [None]
  - PULMONARY HYPERTENSION [None]
  - RENAL DISORDER [None]
